FAERS Safety Report 4785974-1 (Version None)
Quarter: 2005Q3

REPORT INFORMATION
  Report Type: 
  Country: None (occurrence: None)
  Receive Date: 20050930
  Receipt Date: 20050919
  Transmission Date: 20060218
  Serious: Yes (Hospitalization)
  Sender: FDA-Public Use
  Company Number: GXKR2005IT01677

PATIENT
  Age: 90 Year
  Sex: Female

DRUGS (4)
  1. AMIODARONE HCL [Suspect]
     Indication: ARRHYTHMIA
     Dosage: 200 MG, ORAL
     Route: 048
     Dates: start: 20041030, end: 20050524
  2. RAMIPRIL [Concomitant]
  3. SPIROFUR (FUROSEMIDE, SPIRONOLACTONE) [Concomitant]
  4. NORVASC [Concomitant]

REACTIONS (4)
  - ASTHENIA [None]
  - FALL [None]
  - HYPOTHYROIDISM [None]
  - TREMOR [None]
